FAERS Safety Report 9604425 (Version 3)
Quarter: 2014Q2

REPORT INFORMATION
  Report Type: Report from Study
  Country: FR (occurrence: FR)
  Receive Date: 20131008
  Receipt Date: 20140623
  Transmission Date: 20141212
  Serious: Yes (Hospitalization)
  Sender: FDA-Public Use
  Company Number: FR-ROCHE-1194225

PATIENT
  Age: 69 Year
  Sex: Female
  Weight: 52 kg

DRUGS (2)
  1. TOCILIZUMAB [Suspect]
     Indication: RHEUMATOID ARTHRITIS
     Route: 042
     Dates: start: 20121015, end: 20130114
  2. CORTANCYL [Concomitant]
     Indication: POLYARTHRITIS
     Route: 048
     Dates: start: 1990

REACTIONS (2)
  - Osteitis [Recovered/Resolved]
  - Inflammation [Recovered/Resolved]
